FAERS Safety Report 19951008 (Version 1)
Quarter: 2021Q4

REPORT INFORMATION
  Report Type: Spontaneous
  Country: SI (occurrence: SI)
  Receive Date: 20211013
  Receipt Date: 20211013
  Transmission Date: 20220303
  Serious: Yes (Other)
  Sender: FDA-Public Use
  Company Number: SI-002147023-NVSC2021SI132038

PATIENT
  Age: 73 Year
  Sex: Female

DRUGS (11)
  1. VINORELBINE [Suspect]
     Active Substance: VINORELBINE TARTRATE
     Indication: Breast cancer
     Dosage: 25 MILLIGRAM/SQ. METER (25 MG/M2)
     Route: 042
  2. FEMARA [Suspect]
     Active Substance: LETROZOLE
     Indication: Breast cancer
     Dosage: UNK
     Route: 065
  3. FULVESTRANT [Suspect]
     Active Substance: FULVESTRANT
     Indication: Breast cancer
     Dosage: UNK
     Route: 065
     Dates: start: 20171002
  4. AFINITOR [Suspect]
     Active Substance: EVEROLIMUS
     Indication: Breast cancer
     Dosage: UNK
     Route: 065
     Dates: start: 20200228
  5. IBRANCE [Concomitant]
     Active Substance: PALBOCICLIB
     Indication: Product used for unknown indication
     Dosage: 100 MILLIGRAM, QD (100 MG, QD)
     Route: 065
     Dates: start: 20190705, end: 20190802
  6. IBRANCE [Concomitant]
     Active Substance: PALBOCICLIB
     Dosage: 125 MILLIGRAM, QD(125 MG, QD)
     Route: 065
     Dates: start: 20181108, end: 20181207
  7. IBRANCE [Concomitant]
     Active Substance: PALBOCICLIB
     Dosage: 100 MILLIGRAM, QD(100 MG, QD)
     Route: 065
     Dates: start: 20181220, end: 20190412
  8. IBRANCE [Concomitant]
     Active Substance: PALBOCICLIB
     Dosage: 75 MILLIGRAM, QD(75 MG, QD)
     Route: 065
     Dates: start: 20190813
  9. DENOSUMAB [Concomitant]
     Active Substance: DENOSUMAB
     Indication: Product used for unknown indication
     Dosage: UNK
     Route: 065
     Dates: start: 20171002
  10. AROMASIN [Concomitant]
     Active Substance: EXEMESTANE
     Indication: Product used for unknown indication
     Dosage: UNK
     Route: 065
     Dates: start: 20200228
  11. CAPECITABINE [Concomitant]
     Active Substance: CAPECITABINE
     Indication: Product used for unknown indication
     Dosage: 2000 MILLIGRAM/SQ. METER, QD (1000 MG/M2, BID)
     Route: 065

REACTIONS (25)
  - Metastases to bone [Not Recovered/Not Resolved]
  - Malignant neoplasm progression [Not Recovered/Not Resolved]
  - Hepatic lesion [Not Recovered/Not Resolved]
  - Breast cancer [Not Recovered/Not Resolved]
  - Lymphangiosis carcinomatosa [Unknown]
  - Venous thrombosis [Unknown]
  - Metastases to liver [Not Recovered/Not Resolved]
  - Spinal compression fracture [Unknown]
  - Neutropenia [Unknown]
  - Back pain [Recovered/Resolved]
  - Bundle branch block left [Unknown]
  - Pleural effusion [Unknown]
  - Fractured sacrum [Unknown]
  - Carbohydrate antigen 15-3 increased [Unknown]
  - Decreased appetite [Unknown]
  - Keratopathy [Unknown]
  - Productive cough [Unknown]
  - Visual impairment [Unknown]
  - Spinal pain [Recovered/Resolved]
  - Abdominal pain upper [Unknown]
  - Acne [Unknown]
  - Weight decreased [Unknown]
  - Palpitations [Unknown]
  - General physical health deterioration [Unknown]
  - Pyrexia [Unknown]

NARRATIVE: CASE EVENT DATE: 20180328
